FAERS Safety Report 8005744-0 (Version None)
Quarter: 2011Q4

REPORT INFORMATION
  Report Type: 
  Country: None (occurrence: None)
  Receive Date: 20111223
  Receipt Date: 20111214
  Transmission Date: 20120403
  Serious: Yes (Other)
  Sender: FDA-Public Use
  Company Number: FI-NOVOPROD-329985

PATIENT

DRUGS (3)
  1. PROTAPHANE [Suspect]
     Indication: GESTATIONAL DIABETES
     Dosage: 16+18 IU
     Route: 064
     Dates: start: 20060103
  2. PROTAPHANE [Suspect]
     Dosage: 16+18 IU
     Route: 064
     Dates: start: 20060103
  3. HUMALOG [Suspect]
     Indication: GESTATIONAL DIABETES
     Dosage: 3+3+10+3 IU
     Route: 064
     Dates: start: 20060308

REACTIONS (2)
  - HYPERBILIRUBINAEMIA NEONATAL [None]
  - FOETAL EXPOSURE DURING PREGNANCY [None]
